FAERS Safety Report 7756342-5 (Version None)
Quarter: 2011Q3

REPORT INFORMATION
  Report Type: 
  Country: None (occurrence: None)
  Receive Date: 20110825
  Receipt Date: 20110515
  Transmission Date: 20111222
  Serious: No
  Sender: FDA-Public Use
  Company Number: 328654

PATIENT
  Age: 40 Year
  Sex: Female

DRUGS (2)
  1. VICTOZA [Suspect]
     Indication: TYPE 2 DIABETES MELLITUS
     Dosage: 1.2 MG, QD, SUBCUTANEOUS
     Route: 058
  2. METFORMIN HCL [Suspect]
     Indication: TYPE 2 DIABETES MELLITUS
     Dosage: 1000 MG, BID (IN THE MORNING AND EVENING)

REACTIONS (1)
  - HYPOGLYCAEMIA [None]
